FAERS Safety Report 5516093-4 (Version None)
Quarter: 2007Q4

REPORT INFORMATION
  Report Type: 
  Country: None (occurrence: None)
  Receive Date: 20071114
  Receipt Date: 20061207
  Transmission Date: 20080405
  Serious: No
  Sender: FDA-Public Use
  Company Number: A0630580A

PATIENT
  Age: 40 Year
  Sex: Female

DRUGS (2)
  1. COMMIT [Suspect]
  2. COMMIT [Suspect]

REACTIONS (4)
  - MALAISE [None]
  - NAUSEA [None]
  - RETCHING [None]
  - VOMITING [None]
